FAERS Safety Report 9895550 (Version 1)
Quarter: 2014Q1

REPORT INFORMATION
  Report Type: Spontaneous
  Country: US (occurrence: US)
  Receive Date: 20140213
  Receipt Date: 20140213
  Transmission Date: 20141002
  Serious: No
  Sender: FDA-Public Use
  Company Number: US-BRISTOL-MYERS SQUIBB COMPANY-17290313

PATIENT
  Age: 63 Year
  Sex: Female

DRUGS (2)
  1. ABATACEPT SUBQ INJECTION 125MG/ML [Suspect]
     Dosage: 1DF= 125MG/ML?RECENT DOSE DEC2012
     Route: 058
  2. ORENCIA [Suspect]
     Route: 042

REACTIONS (2)
  - Adverse event [Unknown]
  - Drug ineffective [Unknown]
